FAERS Safety Report 5903451-9 (Version None)
Quarter: 2008Q3

REPORT INFORMATION
  Report Type: 
  Country: None (occurrence: None)
  Receive Date: 20080930
  Receipt Date: 20080919
  Transmission Date: 20090109
  Serious: Yes (Other)
  Sender: FDA-Public Use
  Company Number: JP-ROCHE-587900

PATIENT
  Sex: Male

DRUGS (9)
  1. TAMIFLU [Suspect]
     Indication: INFLUENZA
     Route: 048
     Dates: start: 20080801, end: 20080802
  2. ACETAMINOPHEN [Concomitant]
  3. NICORANDIL [Concomitant]
     Dosage: DRUG NAME REPORTED: CIGULANCOAT
     Route: 048
  4. AZULENE SULFONATE SODIUM/L-GLUTAMINE [Concomitant]
     Dosage: DRUG NAME REPORTED: PODONIN-S.
     Route: 048
  5. GASMOTIN [Concomitant]
     Dosage: FORM REPORTED: ORAL FORMULATION (NOT OTHERWISE SPECIFIED).
     Route: 048
  6. LANSOPRAZOLE [Concomitant]
  7. RENAGEL [Concomitant]
     Route: 048
  8. CEROCRAL [Concomitant]
     Dosage: FORM REPORTED: ORAL FORMULATION (NOT OTHERWISE SPECIFIED).
     Route: 048
  9. OLMETEC [Concomitant]
     Route: 048

REACTIONS (1)
  - ABNORMAL BEHAVIOUR [None]
